FAERS Safety Report 23257475 (Version 5)
Quarter: 2024Q4

REPORT INFORMATION
  Report Type: Spontaneous
  Country: JP (occurrence: JP)
  Receive Date: 20231204
  Receipt Date: 20241109
  Transmission Date: 20250115
  Serious: Yes (Hospitalization)
  Sender: ROCHE
  Company Number: JP-CHUGAI-2023042595

PATIENT
  Age: 38 Year
  Sex: Female
  Weight: 35.0 kg

DRUGS (3)
  1. ENSPRYNG [Suspect]
     Active Substance: SATRALIZUMAB-MWGE
     Indication: Neuromyelitis optica spectrum disorder
     Dosage: 1A,UNK
     Route: 058
     Dates: start: 20221107, end: 20230724
  2. ENSPRYNG [Suspect]
     Active Substance: SATRALIZUMAB-MWGE
     Dosage: 1A
     Route: 058
     Dates: start: 20230912, end: 20240104
  3. TACROLIMUS [Concomitant]
     Active Substance: TACROLIMUS
     Dosage: UNK
     Route: 065
     Dates: start: 20111104

REACTIONS (3)
  - Drug specific antibody present [Not Recovered/Not Resolved]
  - Neuromyelitis optica spectrum disorder [Recovering/Resolving]
  - Liver disorder [Recovered/Resolved]

NARRATIVE: CASE EVENT DATE: 20231113
